FAERS Safety Report 8846071 (Version 2)
Quarter: 2012Q4

REPORT INFORMATION
  Report Type: 
  Country: CH (occurrence: CH)
  Receive Date: 20121017
  Receipt Date: 20121120
  Transmission Date: 20130627
  Serious: Yes (Hospitalization)
  Sender: FDA-Public Use
  Company Number: CH-TEVA-364050ISR

PATIENT
  Age: 60 Year
  Sex: Female

DRUGS (20)
  1. FENTANYL [Suspect]
     Indication: ANAESTHETIC PREMEDICATION
     Dosage: only one dose
     Route: 040
     Dates: start: 20120614, end: 20120614
  2. NEXIUM MUPS [Suspect]
     Indication: GASTRIC ULCER
     Dosage: 40 Milligram Daily;
     Route: 048
     Dates: start: 20120614, end: 20120615
  3. SOLUMEDROL(METHYLPREDNISOLONE SODIUM SUCCINATE) INFUSION [Suspect]
     Indication: CHRONIC OBSTRUCTIVE PULMONARY DISEASE
     Dosage: only one dose
     Route: 041
     Dates: start: 20120614, end: 20120614
  4. SYMBICORT [Concomitant]
     Dosage: 2 Dosage forms Daily;
  5. SERETIDE [Concomitant]
     Dosage: 2 Dosage forms Daily;
  6. TAZOBAC [Concomitant]
     Dosage: 4.5 Gram Daily; one dose on 14-JUN, after retaking for one week from 16-JUN
     Route: 048
     Dates: start: 20120614, end: 20120623
  7. ETOMIDATE [Concomitant]
     Dosage: only one dose
     Route: 040
     Dates: start: 20120614, end: 20120614
  8. SUCCICHOLINE [Concomitant]
     Dosage: only one dose
     Route: 040
     Dates: start: 20120614, end: 20120614
  9. PHENYLEPHRINE [Concomitant]
     Route: 040
     Dates: start: 20120614, end: 20120614
  10. NOREPINEPHRINE [Concomitant]
     Route: 041
     Dates: start: 20120614, end: 20120614
  11. PREDNISONE [Concomitant]
     Dosage: 20 Milligram Daily;
     Dates: start: 20120614, end: 20120616
  12. INSULINE [Concomitant]
     Route: 041
  13. DOBUTAMINE [Concomitant]
     Route: 041
  14. LASIX [Concomitant]
     Dosage: 10 Milligram Daily;
     Dates: start: 20120615, end: 20120615
  15. HEPARINE [Concomitant]
     Dosage: 5000 IU (International Unit) Daily;
     Dates: start: 20120617, end: 20120618
  16. FONDAPARINUX [Concomitant]
     Dosage: 2.5 Milligram Daily;
     Route: 058
     Dates: start: 20120617
  17. FOLIC ACID [Concomitant]
     Dosage: 1 Milligram Daily;
     Dates: start: 20120617
  18. TORASEMIDE [Concomitant]
     Dosage: 10 Milligram Daily;
     Route: 048
  19. ROCURONIUM [Concomitant]
     Dosage: only one dose
     Route: 040
     Dates: start: 20120614, end: 20120614
  20. ENALAPRIL [Concomitant]
     Dosage: 10 Milligram Daily;
     Dates: start: 20120617

REACTIONS (1)
  - Thrombocytopenia [Recovering/Resolving]
